FAERS Safety Report 10014739 (Version 2)
Quarter: 2014Q2

REPORT INFORMATION
  Report Type: Spontaneous
  Country: US (occurrence: US)
  Receive Date: 20140317
  Receipt Date: 20140516
  Transmission Date: 20141212
  Serious: Yes (Death, Life-Threatening, Hospitalization, Disabling, Other)
  Sender: FDA-Public Use
  Company Number: US-009507513-1403USA007667

PATIENT
  Sex: Male
  Weight: 105.67 kg

DRUGS (7)
  1. JANUVIA [Suspect]
     Indication: TYPE 2 DIABETES MELLITUS
     Dosage: 100 MG, QD
     Route: 048
     Dates: start: 20070423, end: 20101015
  2. GLUCOPHAGE [Concomitant]
     Indication: TYPE 2 DIABETES MELLITUS
  3. ACTOS [Concomitant]
     Indication: TYPE 2 DIABETES MELLITUS
  4. ACTOPLUS MET [Concomitant]
     Indication: TYPE 2 DIABETES MELLITUS
     Dosage: 850MG-15MG, QD-BID
     Route: 048
  5. AMARYL [Concomitant]
     Indication: TYPE 2 DIABETES MELLITUS
     Dosage: 4 MG, QD
     Route: 048
  6. LEVEMIR [Concomitant]
     Indication: TYPE 2 DIABETES MELLITUS
  7. COUMADIN [Concomitant]
     Indication: ATRIAL FIBRILLATION
     Dosage: 4MG-6MG, QD

REACTIONS (53)
  - Pancreatic carcinoma metastatic [Fatal]
  - Transurethral prostatectomy [Unknown]
  - Metastases to liver [Unknown]
  - Metastases to spleen [Unknown]
  - Metastases to peritoneum [Unknown]
  - Metastases to stomach [Unknown]
  - Basal cell carcinoma [Unknown]
  - Gastrooesophageal reflux disease [Unknown]
  - Toxicity to various agents [Unknown]
  - Upper gastrointestinal haemorrhage [Unknown]
  - Transurethral prostatectomy [Unknown]
  - Oesophagitis [Unknown]
  - Hypercholesterolaemia [Not Recovered/Not Resolved]
  - Blood triglycerides increased [Not Recovered/Not Resolved]
  - Hypertension [Unknown]
  - Ulcer [Unknown]
  - Bronchitis [Unknown]
  - Pelvic fluid collection [Unknown]
  - Night sweats [Unknown]
  - Decreased appetite [Unknown]
  - Hepatomegaly [Unknown]
  - Abdominal distension [Unknown]
  - Coagulopathy [Unknown]
  - Drug interaction [Unknown]
  - Ascites [Unknown]
  - Gastric disorder [Unknown]
  - Benign prostatic hyperplasia [Unknown]
  - Angiopathy [Unknown]
  - Erectile dysfunction [Unknown]
  - Prostatic specific antigen increased [Unknown]
  - Blood bilirubin abnormal [Unknown]
  - Haematemesis [Unknown]
  - Urethral stricture postoperative [Unknown]
  - Prostatic haemorrhage [Unknown]
  - Urinary tract infection [Unknown]
  - Skin neoplasm excision [Unknown]
  - Arthritis [Unknown]
  - Glaucoma [Unknown]
  - Peripheral venous disease [Unknown]
  - Deep vein thrombosis [Unknown]
  - Knee operation [Unknown]
  - Knee operation [Unknown]
  - Tonsillectomy [Unknown]
  - Shoulder operation [Unknown]
  - Anxiety [Unknown]
  - Cardiac murmur [Unknown]
  - Osteoarthritis [Unknown]
  - Hydronephrosis [Unknown]
  - Hiatus hernia [Unknown]
  - Pleural effusion [Unknown]
  - Atelectasis [Unknown]
  - Abdominal pain [Unknown]
  - Constipation [Unknown]
